FAERS Safety Report 5232115-2 (Version None)
Quarter: 2007Q1

REPORT INFORMATION
  Report Type: 
  Country: None (occurrence: None)
  Receive Date: 20061201
  Receipt Date: 20060829
  Transmission Date: 20070707
  Serious: No
  Sender: FDA-Public Use
  Company Number: US200608006682

PATIENT
  Age: 43 Year
  Sex: Female

DRUGS (2)
  1. CYMBALTA [Suspect]
     Indication: TACHYCARDIA
     Dosage: SEE IMAGE
     Dates: start: 20060601, end: 20060715
  2. CYMBALTA [Suspect]
     Indication: TACHYCARDIA
     Dosage: SEE IMAGE
     Dates: start: 20060716

REACTIONS (7)
  - BLOOD PRESSURE INCREASED [None]
  - CHEST PAIN [None]
  - HEART RATE INCREASED [None]
  - MALAISE [None]
  - NAUSEA [None]
  - SOMNOLENCE [None]
  - TREMOR [None]
